FAERS Safety Report 15264646 (Version 1)
Quarter: 2018Q3

REPORT INFORMATION
  Report Type: Report from Study
  Country: US (occurrence: US)
  Receive Date: 20180810
  Receipt Date: 20180810
  Transmission Date: 20181010
  Serious: Yes (Death, Hospitalization)
  Sender: FDA-Public Use
  Company Number: US-ASTRAZENECA-2018SE98772

PATIENT
  Age: 31728 Day
  Sex: Female

DRUGS (2)
  1. HYDROCHLOROTHIAZIDE. [Concomitant]
     Active Substance: HYDROCHLOROTHIAZIDE
     Indication: BLOOD PRESSURE AMBULATORY
  2. FARXIGA [Suspect]
     Active Substance: DAPAGLIFLOZIN PROPANEDIOL
     Indication: TYPE 2 DIABETES MELLITUS
     Route: 048
     Dates: start: 201803, end: 20180405

REACTIONS (11)
  - Adverse drug reaction [Not Recovered/Not Resolved]
  - Cerebral disorder [Unknown]
  - Adverse drug reaction [Unknown]
  - Death [Fatal]
  - Fungal infection [Unknown]
  - Tooth loss [Unknown]
  - Eating disorder [Unknown]
  - Speech disorder [Unknown]
  - Weight decreased [Unknown]
  - Dysphagia [Unknown]
  - Vocal cord paralysis [Unknown]

NARRATIVE: CASE EVENT DATE: 20180401
